FAERS Safety Report 15060549 (Version 7)
Quarter: 2018Q4

REPORT INFORMATION
  Report Type: Spontaneous
  Country: US (occurrence: US)
  Receive Date: 20180625
  Receipt Date: 20181129
  Transmission Date: 20190204
  Serious: Yes (Hospitalization, Other)
  Sender: FDA-Public Use
  Company Number: US-PFIZER INC-2018250482

PATIENT
  Age: 69 Year
  Sex: Female
  Weight: 70 kg

DRUGS (43)
  1. IBUPROFEN. [Concomitant]
     Active Substance: IBUPROFEN
     Indication: PAIN
     Dosage: 200 MG, UNK [3-4 TABLETS EVERY 8-12 HOURS BY MOUTH OFF AND ON]
     Route: 048
  2. DOLOPHINE [Concomitant]
     Active Substance: METHADONE HYDROCHLORIDE
     Dosage: 2.5 MG, 3X/DAY
     Route: 048
  3. NEURONTIN [Concomitant]
     Active Substance: GABAPENTIN
     Indication: RHEUMATOID ARTHRITIS
     Dosage: 900 MG, DAILY(1 CAPSULE IN THE MORNING AND 2 AT NIGHT)
     Dates: start: 2013
  4. VANSPAR [Concomitant]
     Dosage: 7.5 MG, 2X/DAY
     Route: 048
  5. DELTASONE [PREDNISONE] [Concomitant]
     Dosage: 5 MG, 1X/DAY
     Route: 048
  6. RYTHMOL [PROPAFENONE] [Concomitant]
     Dosage: 150 MG, 3X/DAY (TAKE150MG BY MOUTH EVERY EIGHT HOURS)
     Route: 048
  7. XELJANZ [Suspect]
     Active Substance: TOFACITINIB CITRATE
     Dosage: 5 MG, 2X/DAY
     Route: 048
     Dates: start: 201806
  8. TYLENOL [Concomitant]
     Active Substance: ACETAMINOPHEN
     Indication: PAIN
     Dosage: UNK, AS NEEDED (TAKE 1-2 TABLETS (500-1000MG) BY MOUTH EVERY SIX HOURS AS NEEDED)
     Route: 048
  9. ACETAMINOPHEN. [Concomitant]
     Active Substance: ACETAMINOPHEN
     Dosage: UNK
  10. PREMARIN [Concomitant]
     Active Substance: ESTROGENS, CONJUGATED
     Dosage: 0.5 G, WEEKLY
     Route: 067
  11. LASIX [Concomitant]
     Active Substance: FUROSEMIDE
     Dosage: 20 MG, AS NEEDED
     Route: 048
  12. AMITIZA [Concomitant]
     Active Substance: LUBIPROSTONE
     Dosage: 24 UG, 2X/DAY
     Route: 048
  13. PREDNISOLONE ACETATE. [Concomitant]
     Active Substance: PREDNISOLONE ACETATE
     Dosage: UNK UNK, 1X/DAY (USE 1 PEN NEEDLE ONCE DAILY)
  14. IMITREX [Concomitant]
     Active Substance: SUMATRIPTAN SUCCINATE
     Indication: MIGRAINE
     Dosage: 100 MG, UNK
     Route: 048
  15. XELJANZ [Suspect]
     Active Substance: TOFACITINIB CITRATE
     Dosage: 5 MG, DAILY
     Route: 048
  16. NEURONTIN [Concomitant]
     Active Substance: GABAPENTIN
     Dosage: 1500 MG, DAILY[2 CAPSULE IN THE MORNING AND 3 CAPSULES AT NIGHT]
     Dates: start: 2013
  17. NEURONTIN [Concomitant]
     Active Substance: GABAPENTIN
     Dosage: UNK
     Dates: end: 201806
  18. AMLODIPINE [Concomitant]
     Active Substance: AMLODIPINE BESYLATE
     Dosage: UNK
  19. VENTOLIN HFA [Concomitant]
     Active Substance: ALBUTEROL SULFATE
     Indication: DYSPNOEA
  20. PROZAC [Concomitant]
     Active Substance: FLUOXETINE HYDROCHLORIDE
     Dosage: 40 MG, 1X/DAY
     Route: 048
  21. SYNTHROID [Concomitant]
     Active Substance: LEVOTHYROXINE SODIUM
     Dosage: 50 UG, 1X/DAY
     Route: 048
  22. NILSTAT [NYSTATIN] [Concomitant]
     Dosage: 5 ML, 4X/DAY
     Route: 048
  23. PRILOSEC [Concomitant]
     Active Substance: OMEPRAZOLE MAGNESIUM
     Dosage: 20 MG, 1X/DAY
     Route: 048
  24. PROPAFENONE. [Concomitant]
     Active Substance: PROPAFENONE
     Dosage: 150 MG, 3X/DAY (TAKE 0.5 TABLETS (150MG) BY MOUTH EVERY EIGHT HOURS)
     Route: 048
  25. XARELTO [Concomitant]
     Active Substance: RIVAROXABAN
     Dosage: 20 MG, 1X/DAY
     Route: 048
  26. COLLAGENASE SANTYL [Concomitant]
     Active Substance: COLLAGENASE CLOSTRIDIUM HISTOLYTICUM
     Dosage: UNK, AS NEEDED
  27. FORTEO [Concomitant]
     Active Substance: TERIPARATIDE
     Dosage: UNK, 1X/DAY (INJECT 20MCG INTO THE SKIN ONCE DAILY)
  28. LIDOCAINE. [Concomitant]
     Active Substance: LIDOCAINE
     Indication: PAIN
     Dosage: UNK, AS NEEDED
  29. CALTRATE 600+D [Concomitant]
     Dosage: 600 MG, 1X/DAY
     Route: 048
  30. FLONASE [Concomitant]
     Active Substance: FLUTICASONE PROPIONATE
     Dosage: UNK UNK, 1X/DAY (2 SPRAYS IN EACH NOSTRILS ONCE DAILY)
     Route: 045
  31. XELJANZ [Suspect]
     Active Substance: TOFACITINIB CITRATE
     Indication: RHEUMATOID ARTHRITIS
     Dosage: 5 MG, 2X/DAY
     Route: 048
     Dates: start: 20180601
  32. ADVIL [Concomitant]
     Active Substance: IBUPROFEN
     Dosage: UNK
  33. VENTOLIN HFA [Concomitant]
     Active Substance: ALBUTEROL SULFATE
     Indication: COUGH
     Dosage: 90 UG, AS NEEDED (INHALE 2 PUFFS BY MOUTH EVERY FOUR TO SIX HOURS AS NEEDED)
     Route: 048
  34. SOMINEX [DIPHENHYDRAMINE HYDROCHLORIDE] [Concomitant]
     Indication: HYPERSENSITIVITY
     Dosage: 50 MG, AS NEEDED
     Route: 048
  35. NYTOL [Concomitant]
     Active Substance: DIPHENHYDRAMINE HYDROCHLORIDE
     Indication: HYPERSENSITIVITY
     Dosage: 25 MG, AS NEEDED
     Route: 048
  36. VIBRAMYCIN [DOXYCYCLINE HYCLATE] [Concomitant]
     Dosage: 100 MG, 2X/DAY
     Route: 048
  37. PREDNISONE. [Concomitant]
     Active Substance: PREDNISONE
     Dosage: 5 MG, 3X/DAY
     Route: 048
     Dates: start: 20180626
  38. ALBUTEROL HFA [Concomitant]
     Active Substance: ALBUTEROL SULFATE
     Dosage: UNK
  39. VENTOLIN HFA [Concomitant]
     Active Substance: ALBUTEROL SULFATE
     Indication: WHEEZING
  40. NORVASC [Concomitant]
     Active Substance: AMLODIPINE BESYLATE
     Dosage: 2.5 MG, 1X/DAY (EVERY MORNING)
     Route: 048
  41. MUCINEX [Concomitant]
     Active Substance: GUAIFENESIN
     Dosage: 600 MG, 2X/DAY
     Route: 048
  42. ADVIL LIQUI GELS [Concomitant]
     Dosage: UNK, AS NEEDED (TAKE 200-400 MG BY MOUTH EVERY SIX TO EIGHT HOURS AS NEEDED)
     Route: 048
  43. OCEAN NASAL [Concomitant]
     Indication: NASAL CONGESTION
     Dosage: UNK, AS NEEDED (2 SPRAYS IN EACH NOSTRIL EVERY FOUR HOURS AS NEEDED)
     Route: 045

REACTIONS (11)
  - Joint swelling [Unknown]
  - Haematochezia [Recovered/Resolved]
  - Drug ineffective [Not Recovered/Not Resolved]
  - Peripheral swelling [Unknown]
  - Decreased appetite [Unknown]
  - Abnormal faeces [Not Recovered/Not Resolved]
  - Weight decreased [Unknown]
  - Faeces soft [Not Recovered/Not Resolved]
  - Drug hypersensitivity [Unknown]
  - Constipation [Unknown]
  - Pain in extremity [Not Recovered/Not Resolved]

NARRATIVE: CASE EVENT DATE: 2018
